FAERS Safety Report 8119966-1 (Version None)
Quarter: 2012Q1

REPORT INFORMATION
  Report Type: 
  Country: None (occurrence: None)
  Receive Date: 20120207
  Receipt Date: 20110427
  Transmission Date: 20120608
  Serious: Yes (Other)
  Sender: FDA-Public Use
  Company Number: CHPA2011US05977

PATIENT
  Age: 52 Year
  Sex: Female

DRUGS (5)
  1. EXCEDRIN PM TABLETS [Suspect]
     Indication: INSOMNIA
     Dosage: 1 DF, PRN
  2. VYVANSE [Concomitant]
     Indication: ATTENTION DEFICIT/HYPERACTIVITY DISORDER
     Dosage: UNK, UNK
  3. LEXAPRO [Concomitant]
     Indication: OBSESSIVE-COMPULSIVE DISORDER
     Dosage: UNK, UNK
  4. EXCEDRIN EXTRA STRENGTH TABLETS [Concomitant]
     Indication: PAIN
     Dosage: 2 DF, QD
     Route: 048
     Dates: start: 20020101
  5. EXCEDRIN EXTRA STRENGTH TABLETS [Concomitant]
     Dosage: UNK DF, UNK

REACTIONS (1)
  - HYPERTENSION [None]
